FAERS Safety Report 7767554-9 (Version None)
Quarter: 2011Q3

REPORT INFORMATION
  Report Type: 
  Country: None (occurrence: None)
  Receive Date: 20110922
  Receipt Date: 20110914
  Transmission Date: 20111222
  Serious: Yes (Other)
  Sender: FDA-Public Use
  Company Number: DZ-ASTELLAS-2011EU006244

PATIENT
  Sex: Female

DRUGS (2)
  1. ANTI-WRINKLE [Concomitant]
     Dosage: UNK
     Route: 065
  2. PROTOPIC [Suspect]
     Indication: VITILIGO
     Dosage: 0.1 %, UNKNOWN/D
     Route: 061
     Dates: start: 20110801

REACTIONS (3)
  - SKIN DISCOLOURATION [None]
  - MELANOCYTIC NAEVUS [None]
  - OFF LABEL USE [None]
